FAERS Safety Report 15855073 (Version 1)
Quarter: 2019Q1

REPORT INFORMATION
  Report Type: Spontaneous
  Country: GB (occurrence: GB)
  Receive Date: 20190122
  Receipt Date: 20190122
  Transmission Date: 20190417
  Serious: Yes (Hospitalization)
  Sender: FDA-Public Use
  Company Number: GB-MYLANLABS-V-DE-2007-1532

PATIENT
  Age: 52 Year
  Sex: Female

DRUGS (5)
  1. TOBRAMYCIN. [Suspect]
     Active Substance: TOBRAMYCIN
     Indication: PSEUDOMONAS INFECTION
     Dosage: 9MG/KG/DAY (120 MG, FREQ: TID)
     Route: 042
     Dates: start: 20040201
  2. AZITHROMYCIN ANHYDROUS. [Suspect]
     Active Substance: AZITHROMYCIN ANHYDROUS
     Indication: PSEUDOMONAS INFECTION
     Dosage: UNK
     Route: 065
     Dates: start: 2004
  3. COLOMYCIN                          /00013203/ [Suspect]
     Active Substance: COLISTIN SULFATE
     Indication: PSEUDOMONAS INFECTION
  4. TOBI [Suspect]
     Active Substance: TOBRAMYCIN
     Indication: PSEUDOMONAS INFECTION
  5. COLOMYCIN                          /00013203/ [Suspect]
     Active Substance: COLISTIN SULFATE
     Indication: CONDITION AGGRAVATED
     Dosage: 2 DF, UNK (120 MG, 2 MEGAUNITS)
     Route: 042
     Dates: start: 20040201

REACTIONS (2)
  - Respiratory disorder [Unknown]
  - Acute kidney injury [Recovered/Resolved]
